FAERS Safety Report 24864983 (Version 1)
Quarter: 2025Q1

REPORT INFORMATION
  Report Type: Spontaneous
  Country: GB (occurrence: GB)
  Receive Date: 20250121
  Receipt Date: 20250121
  Transmission Date: 20250409
  Serious: Yes (Other)
  Sender: AUROBINDO
  Company Number: GB-MHRA-MED-202501082009530350-LCTPD

PATIENT
  Age: 44 Year
  Sex: Female
  Weight: 55 kg

DRUGS (1)
  1. NITROFURANTOIN [Suspect]
     Active Substance: NITROFURANTOIN
     Indication: Gastroenteritis Escherichia coli
     Route: 065
     Dates: start: 20250102, end: 20250103

REACTIONS (2)
  - Anaphylactic reaction [Not Recovered/Not Resolved]
  - Swelling face [Not Recovered/Not Resolved]

NARRATIVE: CASE EVENT DATE: 20250103
